FAERS Safety Report 6535715-2 (Version None)
Quarter: 2010Q1

REPORT INFORMATION
  Report Type: 
  Country: None (occurrence: None)
  Receive Date: 20100113
  Receipt Date: 20100108
  Transmission Date: 20100710
  Serious: Yes (Other)
  Sender: FDA-Public Use
  Company Number: FR-SANOFI-AVENTIS-2010SA001283

PATIENT
  Age: 74 Year
  Sex: Female

DRUGS (8)
  1. URBANYL [Suspect]
     Route: 048
     Dates: start: 20090429, end: 20090623
  2. STILNOX [Suspect]
     Route: 048
     Dates: start: 20090421, end: 20090713
  3. DEPAKINE CHRONO [Suspect]
     Route: 048
     Dates: start: 20090421, end: 20090708
  4. RISPERDAL [Suspect]
     Route: 048
     Dates: start: 20090423
  5. RISPERDAL [Suspect]
     Route: 048
  6. RISPERDAL [Suspect]
     Route: 048
     Dates: end: 20090626
  7. TIAPRIDE ^PANPHARMA^ [Suspect]
     Route: 048
     Dates: start: 20090608, end: 20090623
  8. AKINETON [Suspect]
     Route: 048
     Dates: start: 20090421, end: 20090626

REACTIONS (1)
  - THROMBOCYTOPENIA [None]
